FAERS Safety Report 8710553 (Version 2)
Quarter: 2012Q4

REPORT INFORMATION
  Report Type: 
  Country: US (occurrence: US)
  Receive Date: 20120807
  Receipt Date: 20120904
  Transmission Date: 20130627
  Serious: Yes (Other)
  Sender: FDA-Public Use
  Company Number: US-PFIZER INC-2012188501

PATIENT
  Age: 86 Year
  Sex: Female
  Weight: 76.19 kg

DRUGS (6)
  1. LIPITOR [Suspect]
     Indication: BLOOD CHOLESTEROL INCREASED
     Dosage: 40 mg, 1x/day
     Route: 048
     Dates: start: 201111, end: 201206
  2. ATORVASTATIN CALCIUM [Suspect]
     Indication: BLOOD CHOLESTEROL INCREASED
     Dosage: 40 mg, 1x/day
     Route: 048
     Dates: start: 201206, end: 201206
  3. ARICEPT [Concomitant]
     Dosage: UNK
  4. ASPIRIN [Concomitant]
     Indication: CEREBROVASCULAR ACCIDENT
     Dosage: 325 mg, UNK
  5. VITAMIN B6 [Concomitant]
     Dosage: UNK
  6. VITAMIN B12 [Concomitant]
     Dosage: UNK

REACTIONS (2)
  - Muscular weakness [Recovering/Resolving]
  - Asthenia [Recovering/Resolving]
